FAERS Safety Report 14282099 (Version 3)
Quarter: 2018Q2

REPORT INFORMATION
  Report Type: Spontaneous
  Country: US (occurrence: US)
  Receive Date: 20171213
  Receipt Date: 20180614
  Transmission Date: 20180711
  Serious: No
  Sender: FDA-Public Use
  Company Number: US-PFIZER INC-2017525566

PATIENT
  Age: 59 Year
  Sex: Male

DRUGS (1)
  1. POTASSIUM CHLORIDE. [Suspect]
     Active Substance: POTASSIUM CHLORIDE
     Dosage: UNK

REACTIONS (4)
  - Scan adrenal gland abnormal [Recovering/Resolving]
  - Abdominal pain upper [Unknown]
  - Tooth loss [Unknown]
  - Dry mouth [Unknown]
